FAERS Safety Report 23692990 (Version 1)
Quarter: 2024Q2

REPORT INFORMATION
  Report Type: Spontaneous
  Country: US (occurrence: US)
  Receive Date: 20240401
  Receipt Date: 20240401
  Transmission Date: 20240716
  Serious: No
  Sender: FDA-Public Use
  Company Number: US-SA-SAC20240328001208

PATIENT
  Sex: Female
  Weight: 66.67 kg

DRUGS (18)
  1. DUPIXENT [Suspect]
     Active Substance: DUPILUMAB
     Indication: Dermatitis atopic
     Dosage: 300 MG, QOW
     Route: 058
  2. PLAVIX [Concomitant]
     Active Substance: CLOPIDOGREL BISULFATE
  3. KETOCONAZOLE [Concomitant]
     Active Substance: KETOCONAZOLE
  4. KENALOG [Concomitant]
     Active Substance: TRIAMCINOLONE ACETONIDE
  5. ZETIA [Concomitant]
     Active Substance: EZETIMIBE
  6. TOVET [Concomitant]
  7. TOPROL XL [Concomitant]
     Active Substance: METOPROLOL SUCCINATE
  8. FOSAMAX [Concomitant]
     Active Substance: ALENDRONATE SODIUM
  9. CRESTOR [Concomitant]
     Active Substance: ROSUVASTATIN CALCIUM
  10. ALLEGRA ALLERGY [Concomitant]
     Active Substance: FEXOFENADINE HYDROCHLORIDE
  11. METFORMIN HYDROCHLORIDE [Concomitant]
     Active Substance: METFORMIN HYDROCHLORIDE
  12. HYDROXYZINE HYDROCHLORIDE [Concomitant]
     Active Substance: HYDROXYZINE HYDROCHLORIDE
  13. SINGULAIR [Concomitant]
     Active Substance: MONTELUKAST SODIUM
  14. TRULICITY [Concomitant]
     Active Substance: DULAGLUTIDE
  15. FLUDROCORTISONE ACETATE [Concomitant]
     Active Substance: FLUDROCORTISONE ACETATE
  16. SYNTHROID [Concomitant]
     Active Substance: LEVOTHYROXINE SODIUM
  17. PREDNISONE [Concomitant]
     Active Substance: PREDNISONE
  18. CLOBETASOL [Concomitant]
     Active Substance: CLOBETASOL

REACTIONS (1)
  - Illness [Unknown]
